FAERS Safety Report 13064723 (Version 6)
Quarter: 2017Q1

REPORT INFORMATION
  Report Type: Spontaneous
  Country: CH (occurrence: CH)
  Receive Date: 20161227
  Receipt Date: 20170206
  Transmission Date: 20170428
  Serious: Yes (Hospitalization, Other)
  Sender: FDA-Public Use
  Company Number: CH-PFIZER INC-2016583640

PATIENT
  Age: 65 Year
  Sex: Male
  Weight: 96 kg

DRUGS (27)
  1. TAZOBAC [Suspect]
     Active Substance: PIPERACILLIN SODIUM\TAZOBACTAM SODIUM
     Dosage: 4.5G, 3X/DAY
     Route: 041
     Dates: start: 20160922, end: 20161014
  2. AUGMENTIN [Concomitant]
     Active Substance: AMOXICILLIN\CLAVULANATE POTASSIUM
     Dosage: 2.2 G, 3X/DAY
     Route: 042
     Dates: start: 20160915, end: 20160922
  3. DILATREND [Concomitant]
     Active Substance: CARVEDILOL
     Dosage: 25 MG, 2X/DAY (1-0-1), LONG TERM THERAPY
     Route: 048
  4. BRUFEN /00109205/ [Suspect]
     Active Substance: IBUPROFEN SODIUM
     Dosage: 400, AS NEEDED
     Dates: start: 201608, end: 20160915
  5. CLOPIDOGREL [Concomitant]
     Active Substance: CLOPIDOGREL BISULFATE
     Dosage: 75 MG, 1X/DAY, 1-0-0-0
     Route: 048
     Dates: start: 20160915
  6. PHYSIOTENS [Concomitant]
     Active Substance: MOXONIDINE
     Dosage: 0.4 MG, 1X/DAY, (1-0-0-0)
     Dates: start: 20161020
  7. NOVALGINA [Suspect]
     Active Substance: METAMIZOLE SODIUM
     Dosage: 500, AS NEEDED
     Dates: start: 201608, end: 20161004
  8. PANTOZOL [Concomitant]
     Active Substance: PANTOPRAZOLE SODIUM
     Dosage: 20 MG, QD (1-0-0), LONG TERM
     Route: 048
     Dates: start: 2015, end: 20161029
  9. MEROPENEM. [Concomitant]
     Active Substance: MEROPENEM
     Dosage: 1 G, 3X/DAY
     Dates: start: 20161014, end: 20161014
  10. DIAMICRON [Concomitant]
     Active Substance: GLICLAZIDE
     Dosage: 60 MG, 1X/DAY
     Route: 048
     Dates: start: 20161015, end: 20161027
  11. TAZOBAC [Suspect]
     Active Substance: PIPERACILLIN SODIUM\TAZOBACTAM SODIUM
     Dosage: 4.5G, 3X/DAY
     Route: 041
     Dates: start: 20161025, end: 20161027
  12. ULTRAVIST [Suspect]
     Active Substance: IOPROMIDE
     Dosage: 80 ML, SINGLE
     Route: 042
     Dates: start: 20161014, end: 20161014
  13. PANTOZOL [Concomitant]
     Active Substance: PANTOPRAZOLE SODIUM
     Dosage: 20 MG, QD
     Route: 048
     Dates: start: 20161029, end: 20161108
  14. TAZOBAC [Suspect]
     Active Substance: PIPERACILLIN SODIUM\TAZOBACTAM SODIUM
     Dosage: 4.5 G, 2X/DAY
     Route: 041
     Dates: start: 20161028, end: 20161029
  15. MEROPENEM. [Concomitant]
     Active Substance: MEROPENEM
     Dosage: 500 MG, 2X/DAY
     Dates: start: 20161015, end: 20161018
  16. MEROPENEM. [Concomitant]
     Active Substance: MEROPENEM
     Dosage: 1 G, 2X/DAY
     Dates: start: 20161104
  17. COVERSUM COMBI [Concomitant]
     Active Substance: INDAPAMIDE
     Dosage: 5 MG, 1X/DAY (1-0-0)
     Route: 048
     Dates: start: 20161015, end: 20161027
  18. METFORMIN [Concomitant]
     Active Substance: METFORMIN HYDROCHLORIDE
     Dosage: 1000 MG, 2X/DAY (1-0-1-0), LONG TERM THERAPY
     Dates: end: 20161015
  19. NOVALGINA [Suspect]
     Active Substance: METAMIZOLE SODIUM
     Dosage: 500 FIXED
     Dates: start: 20161004, end: 20161015
  20. PRAVASTATIN. [Concomitant]
     Active Substance: PRAVASTATIN
     Dosage: 40 MG, 1X/DAY, (0-0-1)
     Route: 048
     Dates: start: 20160915, end: 20161015
  21. FRAGMIN [Concomitant]
     Active Substance: DALTEPARIN SODIUM
     Dates: start: 20160915
  22. CIPROFLOXACIN HCL [Suspect]
     Active Substance: CIPROFLOXACIN HYDROCHLORIDE
     Dosage: 500 MG, 2X/DAY
     Route: 048
     Dates: start: 20161019, end: 20161025
  23. BRUFEN /00109205/ [Suspect]
     Active Substance: IBUPROFEN SODIUM
     Dosage: 400 FIXED
     Dates: start: 20160915, end: 20161015
  24. MOVICOL [Concomitant]
     Active Substance: POLYETHYLENE GLYCOL 3350\POTASSIUM CHLORIDE\SODIUM BICARBONATE\SODIUM CHLORIDE
     Dosage: 1 DF, 1X/DAY (1-0-0-0), LONG TERM
     Route: 048
     Dates: end: 201609
  25. ASPIRIN /00002701/ [Concomitant]
     Active Substance: ASPIRIN
     Dosage: 100 MG, 1X/DAY, 1-0-0-0, LONG TERM
     Route: 048
  26. AMLODIPIN /00972401/ [Concomitant]
     Active Substance: AMLODIPINE BESYLATE
     Dosage: 10 MG, 1X/DAY, (0-0-1-0)
     Dates: start: 20161018
  27. MEROPENEM. [Concomitant]
     Active Substance: MEROPENEM
     Dosage: 500 MG, 2X/DAY
     Dates: start: 20161029, end: 20161103

REACTIONS (5)
  - Tubulointerstitial nephritis [Recovering/Resolving]
  - Acute kidney injury [Recovered/Resolved]
  - Histiocytosis haematophagic [Unknown]
  - Rash maculo-papular [Unknown]
  - Pyrexia [Unknown]

NARRATIVE: CASE EVENT DATE: 20161012
